FAERS Safety Report 13057303 (Version 1)
Quarter: 2016Q4

REPORT INFORMATION
  Report Type: Other
  Country: US (occurrence: US)
  Receive Date: 20161223
  Receipt Date: 20161223
  Transmission Date: 20170207
  Serious: No
  Sender: FDA-Public Use
  Company Number: US-ACORDA-ACO_122166_2016

PATIENT
  Age: 49 Year
  Sex: Female

DRUGS (2)
  1. DR. REDDY^S TIZANIDINE [Suspect]
     Active Substance: TIZANIDINE
     Indication: MUSCLE SPASMS
     Dosage: 4 MG, TID
     Dates: start: 201512, end: 2016
  2. TIZANIDINE. [Suspect]
     Active Substance: TIZANIDINE
     Indication: MUSCLE SPASMS
     Dosage: 4 MG, UNK
     Route: 048
     Dates: start: 2016

REACTIONS (5)
  - Drug ineffective [None]
  - Somnolence [Unknown]
  - Muscle spasms [Not Recovered/Not Resolved]
  - Self-medication [None]
  - Condition aggravated [None]

NARRATIVE: CASE EVENT DATE: 2016
